FAERS Safety Report 22161568 (Version 1)
Quarter: 2023Q1

REPORT INFORMATION
  Report Type: Spontaneous
  Country: US (occurrence: US)
  Receive Date: 20230331
  Receipt Date: 20230331
  Transmission Date: 20230418
  Serious: No
  Sender: FDA-Public Use
  Company Number: US-BRISTOL-MYERS SQUIBB COMPANY-2023-046269

PATIENT
  Age: 74 Year
  Sex: Female
  Weight: 133 kg

DRUGS (1)
  1. POMALYST [Suspect]
     Active Substance: POMALIDOMIDE
     Indication: Plasma cell myeloma
     Dosage: FREQ: D1- 21, 7 OFF
     Route: 048
     Dates: start: 20200306

REACTIONS (2)
  - Oedema [Unknown]
  - Hypervolaemia [Unknown]
